FAERS Safety Report 8262980-6 (Version None)
Quarter: 2012Q2

REPORT INFORMATION
  Report Type: 
  Country: None (occurrence: None)
  Receive Date: 20120405
  Receipt Date: 20120403
  Transmission Date: 20120825
  Serious: Yes (Hospitalization, Disabling)
  Sender: FDA-Public Use
  Company Number: US-MERCK-1112USA01776

PATIENT
  Age: 47 Year
  Sex: Female
  Weight: 93 kg

DRUGS (15)
  1. CORTICOSTEROIDS (UNSPECIFIED) [Concomitant]
     Indication: RHEUMATOID ARTHRITIS
     Route: 051
  2. SULFASALAZINE [Concomitant]
     Indication: RHEUMATOID ARTHRITIS
     Route: 065
     Dates: start: 19990101
  3. FOSAMAX [Suspect]
     Route: 048
     Dates: start: 20100101, end: 20110101
  4. FOSAMAX [Suspect]
     Indication: OSTEOPOROSIS
     Route: 048
     Dates: start: 19991123
  5. FOSAMAX [Suspect]
     Route: 048
     Dates: start: 20100101, end: 20110101
  6. ALENDRONATE SODIUM [Suspect]
     Indication: OSTEOPENIA
     Route: 048
     Dates: start: 20080801, end: 20110101
  7. METHOTREXATE [Concomitant]
     Indication: RHEUMATOID ARTHRITIS
     Route: 065
     Dates: start: 20020101
  8. CALCIUM (UNSPECIFIED) [Concomitant]
     Indication: OSTEOPOROSIS
     Route: 065
  9. FOSAMAX [Suspect]
     Route: 048
     Dates: start: 20071121, end: 20100101
  10. FOSAMAX [Suspect]
     Indication: OSTEOPENIA
     Route: 048
     Dates: start: 19991123
  11. ENBREL [Concomitant]
     Indication: RHEUMATOID ARTHRITIS
     Route: 065
     Dates: start: 20020101
  12. VITAMIN D (UNSPECIFIED) [Concomitant]
     Indication: OSTEOPOROSIS
     Route: 065
  13. FOSAMAX [Suspect]
     Route: 048
     Dates: start: 20071121, end: 20100101
  14. ALENDRONATE SODIUM [Suspect]
     Indication: OSTEOPOROSIS
     Route: 048
     Dates: start: 20080801, end: 20110101
  15. PREDNISONE [Concomitant]
     Indication: RHEUMATOID ARTHRITIS
     Route: 065

REACTIONS (26)
  - INSOMNIA [None]
  - SKELETAL INJURY [None]
  - PARAESTHESIA [None]
  - LOW TURNOVER OSTEOPATHY [None]
  - OSTEOARTHRITIS [None]
  - SYNOVITIS [None]
  - DEPRESSION [None]
  - DRUG ADMINISTRATION ERROR [None]
  - GLUCOSE TOLERANCE IMPAIRED [None]
  - FOOT DEFORMITY [None]
  - SMEAR CERVIX ABNORMAL [None]
  - FEMUR FRACTURE [None]
  - HYPERTENSION [None]
  - RHEUMATOID ARTHRITIS [None]
  - DYSPNOEA [None]
  - CELLULITIS [None]
  - CHRONIC OBSTRUCTIVE PULMONARY DISEASE [None]
  - MEMORY IMPAIRMENT [None]
  - OSTEONECROSIS [None]
  - TOOTH DISORDER [None]
  - DYSPEPSIA [None]
  - FALL [None]
  - ANXIETY [None]
  - RESTLESS LEGS SYNDROME [None]
  - OFF LABEL USE [None]
  - COUGH [None]
